FAERS Safety Report 8090775-5 (Version None)
Quarter: 2012Q1

REPORT INFORMATION
  Report Type: 
  Country: None (occurrence: None)
  Receive Date: 20120131
  Receipt Date: 20120120
  Transmission Date: 20120608
  Serious: Yes (Life-Threatening, Hospitalization, Disabling)
  Sender: FDA-Public Use
  Company Number: US-BAYER-2011-002780

PATIENT
  Age: 38 Year
  Sex: Female
  Weight: 84.5 kg

DRUGS (8)
  1. BELLADONNA HERB [Concomitant]
     Dosage: UNK UNK, TID
     Route: 048
  2. DICYCLOMINE [Concomitant]
     Dosage: 20 MG, UNK
     Route: 048
  3. YAZ [Suspect]
     Indication: CONTRACEPTION
     Dosage: UNK
     Dates: start: 20081102, end: 20081226
  4. PHENOBARBITAL TAB [Concomitant]
     Dosage: UNK UNK, TID
     Route: 048
  5. BELLADONNA ALKALOIDS [Concomitant]
     Indication: PRODUCT USED FOR UNKNOWN INDICATION
     Dosage: UNK
     Route: 048
     Dates: start: 20081106
  6. LUVOX [Concomitant]
     Dosage: 50 MG, QD
     Route: 048
  7. XIFAXAN [Concomitant]
     Indication: PRODUCT USED FOR UNKNOWN INDICATION
     Dosage: 200 MG, UNK
     Route: 048
     Dates: start: 20081106
  8. FLORASTOR [Concomitant]
     Indication: PRODUCT USED FOR UNKNOWN INDICATION
     Dosage: 250 MG, UNK
     Route: 048
     Dates: start: 20081106

REACTIONS (9)
  - ASTHENIA [None]
  - ANXIETY [None]
  - TRAUMATIC LUNG INJURY [None]
  - PAIN [None]
  - ANGIOPATHY [None]
  - PULMONARY EMBOLISM [None]
  - EMOTIONAL DISTRESS [None]
  - FATIGUE [None]
  - PULMONARY INFARCTION [None]
